FAERS Safety Report 5675209-X (Version None)
Quarter: 2008Q1

REPORT INFORMATION
  Report Type: 
  Country: None (occurrence: None)
  Receive Date: 20080320
  Receipt Date: 20080313
  Transmission Date: 20080703
  Serious: Yes (Death, Other)
  Sender: FDA-Public Use
  Company Number: US-PURDUE-USA_2007_0030580

PATIENT
  Age: 48 Year
  Sex: Male

DRUGS (6)
  1. OXYCONTIN [Suspect]
     Indication: RADICULAR PAIN
     Dosage: UNK, SEE TEXT
     Dates: start: 19980916
  2. OXYIR [Concomitant]
     Indication: DRUG USE FOR UNKNOWN INDICATION
     Dosage: 5 MG, SEE TEXT
     Dates: start: 19981016
  3. LODINE [Concomitant]
     Indication: DRUG USE FOR UNKNOWN INDICATION
     Dosage: 400 MG, BID
     Route: 048
  4. XANAX [Concomitant]
     Indication: DRUG USE FOR UNKNOWN INDICATION
     Dosage: 2 MG, BID
     Route: 048
  5. TRAZODONE HCL [Concomitant]
     Indication: DRUG USE FOR UNKNOWN INDICATION
     Dosage: 150 MG, HS
     Route: 048
  6. SOMA [Concomitant]
     Indication: DRUG USE FOR UNKNOWN INDICATION
     Dosage: 1 TABLET, TID
     Route: 048

REACTIONS (2)
  - DEATH [None]
  - DRUG DEPENDENCE [None]
